FAERS Safety Report 14743197 (Version 3)
Quarter: 2018Q2

REPORT INFORMATION
  Report Type: Spontaneous
  Country: DE (occurrence: DE)
  Receive Date: 20180410
  Receipt Date: 20180619
  Transmission Date: 20180711
  Serious: Yes (Other)
  Sender: FDA-Public Use
  Company Number: DE-ANIPHARMA-2018-DE-000048

PATIENT
  Sex: Female
  Weight: 88 kg

DRUGS (5)
  1. RIBOCICLIB (LEE011) [Suspect]
     Active Substance: RIBOCICLIB
     Dosage: 600MG (200X3) DAILY
     Route: 065
     Dates: start: 20180118, end: 20180208
  2. RIBOCICLIB (LEE011) [Suspect]
     Active Substance: RIBOCICLIB
     Dosage: 400MG
     Route: 065
     Dates: start: 20180511
  3. RIBOCICLIB (LEE011) [Suspect]
     Active Substance: RIBOCICLIB
     Dosage: 600MG (200X3) DAILY / 400MG DAILY
     Dates: start: 20180216, end: 20180228
  4. ANASTROZOLE. [Suspect]
     Active Substance: ANASTROZOLE
     Indication: BREAST CANCER METASTATIC
     Dosage: 1MG DAILY
     Route: 048
     Dates: start: 20180118
  5. RIBOCICLIB (LEE011) [Suspect]
     Active Substance: RIBOCICLIB
     Dosage: 400MG DAILY
     Route: 065
     Dates: start: 20180301, end: 20180412

REACTIONS (4)
  - Leukopenia [Unknown]
  - Neutropenia [Recovering/Resolving]
  - Gamma-glutamyltransferase increased [Unknown]
  - Hepatic lesion [Unknown]

NARRATIVE: CASE EVENT DATE: 20180208
